FAERS Safety Report 20752017 (Version 2)
Quarter: 2022Q2

REPORT INFORMATION
  Report Type: Report from Study
  Country: CA (occurrence: CA)
  Receive Date: 20220426
  Receipt Date: 20220504
  Transmission Date: 20220720
  Serious: Yes (Other)
  Sender: FDA-Public Use
  Company Number: CA-BAUSCH-BL-2022-008854

PATIENT
  Age: 59 Year
  Sex: Male

DRUGS (2)
  1. SILIQ [Suspect]
     Active Substance: BRODALUMAB
     Indication: Psoriasis
     Dosage: 210MG/ 1.5 ML, INDUCTION WEEKLY, WEEK 1: /APR/2022
     Route: 058
     Dates: start: 20220330, end: 202204
  2. SILIQ [Suspect]
     Active Substance: BRODALUMAB
     Dosage: 210MG/ 1.5 ML, Q2WEEKS
     Route: 058
     Dates: start: 202204

REACTIONS (5)
  - Deep vein thrombosis [Unknown]
  - Back pain [Recovering/Resolving]
  - Accident at work [Unknown]
  - Limb injury [Unknown]
  - Intentional product use issue [Unknown]

NARRATIVE: CASE EVENT DATE: 20220101
